FAERS Safety Report 8540950-8 (Version None)
Quarter: 2012Q3

REPORT INFORMATION
  Report Type: 
  Country: None (occurrence: None)
  Receive Date: 20120726
  Receipt Date: 20110810
  Transmission Date: 20120928
  Serious: No
  Sender: FDA-Public Use
  Company Number: US-ASTRAZENECA-2011SE47861

PATIENT
  Sex: Female

DRUGS (6)
  1. SEROQUEL [Suspect]
     Indication: BIPOLAR DISORDER
     Route: 048
  2. VESICARE [Concomitant]
     Indication: BLADDER DISORDER
  3. COGENTIN [Concomitant]
     Indication: RESTLESS LEGS SYNDROME
  4. SEROQUEL [Suspect]
     Dosage: 25MG ONE OR TWO TIMES DAILY
     Route: 048
  5. OXYCODONE HCL [Concomitant]
     Indication: PAIN
  6. AMBIEN [Concomitant]

REACTIONS (4)
  - WEIGHT INCREASED [None]
  - LITHOTRIPSY [None]
  - RESTLESS LEGS SYNDROME [None]
  - NEPHROLITHIASIS [None]
